FAERS Safety Report 25786038 (Version 1)
Quarter: 2025Q3

REPORT INFORMATION
  Report Type: Spontaneous
  Country: US (occurrence: None)
  Receive Date: 20250909
  Receipt Date: 20250909
  Transmission Date: 20251020
  Serious: No
  Sender: FDA-CTU
  Company Number: None

PATIENT

DRUGS (2)
  1. GABAPENTIN\METHYLCOBALAMIN [Suspect]
     Active Substance: GABAPENTIN\METHYLCOBALAMIN
  2. SOLU-MEDROL [Suspect]
     Active Substance: METHYLPREDNISOLONE SODIUM SUCCINATE

REACTIONS (6)
  - Facial pain [None]
  - Dyspnoea [None]
  - Aphasia [None]
  - Anxiety [None]
  - Haematochezia [None]
  - Gastric haemorrhage [None]

NARRATIVE: CASE EVENT DATE: 20250909
